FAERS Safety Report 21855605 (Version 1)
Quarter: 2023Q1

REPORT INFORMATION
  Report Type: Spontaneous
  Country: US (occurrence: US)
  Receive Date: 20230112
  Receipt Date: 20230112
  Transmission Date: 20230418
  Serious: No
  Sender: FDA-Public Use
  Company Number: US-AMGEN-USASP2022227899

PATIENT
  Sex: Male

DRUGS (1)
  1. OTEZLA [Suspect]
     Active Substance: APREMILAST
     Indication: Psoriasis
     Dosage: 10MG, 20MG AND 30MG USE AS DIRECTED (TABLET THERAPY PACK)
     Route: 048
     Dates: start: 20211217

REACTIONS (2)
  - Psoriasis [Unknown]
  - Product administration interrupted [Unknown]
